FAERS Safety Report 6925593-1 (Version None)
Quarter: 2010Q3

REPORT INFORMATION
  Report Type: 
  Country: None (occurrence: None)
  Receive Date: 20100816
  Receipt Date: 20100812
  Transmission Date: 20110219
  Serious: Yes (Hospitalization, Disabling, Other)
  Sender: FDA-Public Use
  Company Number: US-MERCK-1002USA00479

PATIENT
  Age: 57 Year
  Sex: Female
  Weight: 61 kg

DRUGS (3)
  1. FOSAMAX [Suspect]
     Indication: OSTEOPOROSIS
     Route: 048
     Dates: start: 19960101, end: 20080101
  2. FOSAMAX [Suspect]
     Route: 048
     Dates: start: 20021010
  3. FOSAMAX PLUS D [Suspect]
     Route: 048
     Dates: end: 20080427

REACTIONS (14)
  - ARTHROPATHY [None]
  - BURSITIS [None]
  - COLLAGEN DISORDER [None]
  - FALL [None]
  - FATIGUE [None]
  - FEMUR FRACTURE [None]
  - GAIT DISTURBANCE [None]
  - METATARSALGIA [None]
  - MUSCLE SPASMS [None]
  - OESTROGEN DEFICIENCY [None]
  - OSTEOARTHRITIS [None]
  - OSTEOPENIA [None]
  - POSTOPERATIVE FEVER [None]
  - ROTATOR CUFF SYNDROME [None]
